FAERS Safety Report 4528539-9 (Version None)
Quarter: 2004Q4

REPORT INFORMATION
  Report Type: 
  Country: None (occurrence: None)
  Receive Date: 20041216
  Receipt Date: 20041213
  Transmission Date: 20050328
  Serious: Yes (Disabling, Other)
  Sender: FDA-Public Use
  Company Number: US-BRISTOL-MYERS SQUIBB COMPANY-12793162

PATIENT
  Age: 69 Year
  Sex: Female

DRUGS (2)
  1. COUMADIN [Suspect]
  2. METHADOSE [Suspect]

REACTIONS (3)
  - HAEMORRHAGE [None]
  - NERVE INJURY [None]
  - RETROPERITONEAL HAEMATOMA [None]
